FAERS Safety Report 23506141 (Version 1)
Quarter: 2024Q1

REPORT INFORMATION
  Report Type: Spontaneous
  Country: JP (occurrence: JP)
  Receive Date: 20240209
  Receipt Date: 20240209
  Transmission Date: 20240410
  Serious: Yes (Other)
  Sender: FDA-Public Use
  Company Number: JP-TEVA-VS-3154075

PATIENT
  Age: 21 Year
  Sex: Female

DRUGS (2)
  1. RAMELTEON [Suspect]
     Active Substance: RAMELTEON
     Indication: Poor quality sleep
     Dosage: DOSAGE IS UNKNOWN
     Route: 048
     Dates: start: 202401
  2. Strattera25mg [Concomitant]
     Indication: Product used for unknown indication
     Dosage: DOSAGE IS UNKNOWN
     Route: 048

REACTIONS (9)
  - Mental impairment [Unknown]
  - Feeling abnormal [Unknown]
  - Middle insomnia [Unknown]
  - Somnolence [Unknown]
  - Memory impairment [Unknown]
  - Abulia [Unknown]
  - Apathy [Unknown]
  - Malaise [Unknown]
  - Therapeutic product effect prolonged [Unknown]
